FAERS Safety Report 4515324-7 (Version None)
Quarter: 2004Q4

REPORT INFORMATION
  Report Type: 
  Country: None (occurrence: None)
  Receive Date: 20041126
  Receipt Date: 20041116
  Transmission Date: 20050328
  Serious: Yes (Hospitalization, Other)
  Sender: FDA-Public Use
  Company Number: 2004081142

PATIENT
  Age: 37 Year
  Sex: Female
  Weight: 60 kg

DRUGS (7)
  1. NEURONTIN [Suspect]
     Indication: EPILEPSY
     Dosage: 2400 MG (600 MG), ORAL
     Route: 048
     Dates: start: 20040930
  2. OXCARBAZEPINE (OXCARBAZEPINE) [Suspect]
     Indication: ILL-DEFINED DISORDER
     Dosage: ORAL
     Route: 048
     Dates: start: 20040930, end: 20041006
  3. RISPERDAL [Suspect]
     Indication: AUTISM
     Dosage: 2 IN 1 D, ORAL
     Route: 048
     Dates: start: 20040930
  4. NOCTRAN 10 (ACEPROMAZINE, ACEPROMETAZINE, CLORAZEPATE DIPOTASSIUM) [Suspect]
     Indication: NERVOUS SYSTEM DISORDER
     Dates: start: 20040930
  5. PHENOBARBITAL SODIUM 100MG CAP [Suspect]
     Indication: EPILEPSY
     Dosage: 100 MG
     Dates: start: 20040930
  6. PRAVASTATIN SODIUM [Concomitant]
  7. FERROUS SULFATE TAB [Concomitant]

REACTIONS (8)
  - ANAEMIA [None]
  - DRUG INEFFECTIVE [None]
  - DRUG INTERACTION [None]
  - DYSLIPIDAEMIA [None]
  - EPILEPSY [None]
  - HYPONATRAEMIA [None]
  - LEUKOPENIA [None]
  - NEUTROPENIA [None]
